FAERS Safety Report 17173700 (Version 1)
Quarter: 2019Q4

REPORT INFORMATION
  Report Type: Spontaneous
  Country: US (occurrence: US)
  Receive Date: 20191219
  Receipt Date: 20191219
  Transmission Date: 20200122
  Serious: No
  Sender: FDA-Public Use
  Company Number: US-SUPERNUS PHARMACEUTICALS, INC.-2019SUP00361

PATIENT
  Sex: Female

DRUGS (1)
  1. OXTELLAR XR [Suspect]
     Active Substance: OXCARBAZEPINE
     Indication: TRIGEMINAL NEURALGIA
     Dosage: 1800 MG, 1X/DAY
     Route: 048

REACTIONS (2)
  - Laboratory test interference [Not Recovered/Not Resolved]
  - Off label use [Not Recovered/Not Resolved]
